FAERS Safety Report 6056104-3 (Version None)
Quarter: 2009Q1

REPORT INFORMATION
  Report Type: 
  Country: None (occurrence: None)
  Receive Date: 20090128
  Receipt Date: 20090105
  Transmission Date: 20090719
  Serious: Yes (Hospitalization)
  Sender: FDA-Public Use
  Company Number: US-GENENTECH-275017

PATIENT

DRUGS (2)
  1. RITUXAN [Suspect]
     Indication: B-CELL LYMPHOMA
     Dosage: 375 MG/M2, UNK
     Route: 042
  2. IBRITUMOMAB TIUXETAN [Suspect]
     Indication: B-CELL LYMPHOMA

REACTIONS (1)
  - FEBRILE NEUTROPENIA [None]
